FAERS Safety Report 10311311 (Version 1)
Quarter: 2014Q3

REPORT INFORMATION
  Report Type: Spontaneous
  Country: US (occurrence: None)
  Receive Date: 20140716
  Receipt Date: 20140716
  Transmission Date: 20150326
  Serious: Yes (Other)
  Sender: FDA-Public Use
  Company Number: None

PATIENT
  Age: 1 Month
  Sex: Male
  Weight: 4.08 kg

DRUGS (1)
  1. NYSTATIN AND TRIAMCINOLONE [Suspect]
     Active Substance: NYSTATIN\TRIAMCINOLONE ACETONIDE
     Indication: DERMATITIS DIAPER
     Dosage: APPLY WHENEVER CHANGE DIAPERS?AS NEEDED?APPLIED TO A SURFACE USUALLY THE SKIN
     Route: 061
     Dates: start: 20130315, end: 20130731

REACTIONS (5)
  - Sleep disorder [None]
  - Eczema [None]
  - Body height decreased [None]
  - Weight increased [None]
  - Mood altered [None]
